FAERS Safety Report 25162775 (Version 1)
Quarter: 2025Q2

REPORT INFORMATION
  Report Type: Report from Study
  Country: US (occurrence: US)
  Receive Date: 20250404
  Receipt Date: 20250404
  Transmission Date: 20250717
  Serious: Yes (Other)
  Sender: UCB
  Company Number: US-UCBSA-2024004396

PATIENT
  Age: 34 Year
  Sex: Female

DRUGS (4)
  1. CERTOLIZUMAB PEGOL [Suspect]
     Active Substance: CERTOLIZUMAB PEGOL
     Indication: Rheumatoid arthritis
     Dosage: 200 MILLIGRAM, EV 2 WEEKS(QOW)
     Route: 058
     Dates: start: 20240117
  2. CERTOLIZUMAB PEGOL [Suspect]
     Active Substance: CERTOLIZUMAB PEGOL
     Indication: Illness
  3. CERTOLIZUMAB PEGOL [Suspect]
     Active Substance: CERTOLIZUMAB PEGOL
     Indication: Product used for unknown indication
  4. ASPIRIN [Concomitant]
     Active Substance: ASPIRIN
     Indication: Product used for unknown indication

REACTIONS (15)
  - Rheumatoid arthritis [Not Recovered/Not Resolved]
  - Injection site erythema [Recovered/Resolved]
  - Arthritis [Unknown]
  - Malaise [Unknown]
  - Feeling abnormal [Unknown]
  - Lymphadenopathy [Unknown]
  - Arthralgia [Unknown]
  - Chest pain [Unknown]
  - Bladder pain [Recovered/Resolved]
  - Pollakiuria [Recovered/Resolved]
  - Oropharyngeal pain [Not Recovered/Not Resolved]
  - Vaccination complication [Recovered/Resolved]
  - Therapeutic response shortened [Unknown]
  - Maternal exposure during pregnancy [Unknown]
  - Maternal exposure before pregnancy [Unknown]

NARRATIVE: CASE EVENT DATE: 20240101
